FAERS Safety Report 23397783 (Version 5)
Quarter: 2025Q1

REPORT INFORMATION
  Report Type: Spontaneous
  Country: DE (occurrence: DE)
  Receive Date: 20240112
  Receipt Date: 20250206
  Transmission Date: 20250409
  Serious: Yes (Hospitalization, Other)
  Sender: PFIZER
  Company Number: DE-BAXTER-2023BAX039368

PATIENT
  Age: 5 Year
  Sex: Male
  Weight: 19.9 kg

DRUGS (16)
  1. BESPONSA [Suspect]
     Active Substance: INOTUZUMAB OZOGAMICIN
     Indication: B-cell prolymphocytic leukaemia
     Route: 042
     Dates: start: 20231107, end: 20231123
  2. METHOTREXATE SODIUM [Suspect]
     Active Substance: METHOTREXATE SODIUM
     Indication: B-cell prolymphocytic leukaemia
     Route: 037
     Dates: start: 20231205, end: 20231205
  3. METHOTREXATE SODIUM [Suspect]
     Active Substance: METHOTREXATE SODIUM
     Route: 037
     Dates: start: 20231206, end: 20231207
  4. CYTARABINE [Suspect]
     Active Substance: CYTARABINE
     Indication: B-cell prolymphocytic leukaemia
     Route: 037
     Dates: start: 20231205, end: 20231205
  5. CYTARABINE [Suspect]
     Active Substance: CYTARABINE
     Dosage: 1620 MG, TWICE DAILY, SECOND REGIMEN
     Route: 042
     Dates: start: 20231210, end: 20231210
  6. PEGASPARGASE [Suspect]
     Active Substance: PEGASPARGASE
     Indication: B-cell prolymphocytic leukaemia
     Route: 042
     Dates: start: 20231211, end: 20231211
  7. DEXAMETHASONE [Suspect]
     Active Substance: DEXAMETHASONE
     Indication: B-cell prolymphocytic leukaemia
     Dosage: 2 MG, 2X/DAY
     Route: 048
     Dates: start: 20231205, end: 20231211
  8. DEXAMETHASONE [Suspect]
     Active Substance: DEXAMETHASONE
     Indication: B-cell prolymphocytic leukaemia
  9. CYCLOPHOSPHAMIDE [Suspect]
     Active Substance: CYCLOPHOSPHAMIDE
     Indication: B-cell prolymphocytic leukaemia
     Route: 042
     Dates: start: 20231207, end: 20231209
  10. VINCRISTINE SULFATE [Suspect]
     Active Substance: VINCRISTINE SULFATE
     Indication: B-cell prolymphocytic leukaemia
     Dates: start: 20231206, end: 20231211
  11. PREDNISOLONE [Suspect]
     Active Substance: PREDNISOLONE
     Indication: B-cell prolymphocytic leukaemia
     Route: 037
     Dates: start: 20231205, end: 20231205
  12. PREDNISOLONE [Suspect]
     Active Substance: PREDNISOLONE
     Indication: B-cell prolymphocytic leukaemia
  13. COTRIMOXAZOLE [Concomitant]
     Active Substance: SULFAMETHOXAZOLE\TRIMETHOPRIM
     Indication: Immunosuppression
     Route: 048
     Dates: start: 202311
  14. AMBISOME [Concomitant]
     Active Substance: AMPHOTERICIN B
     Indication: Immunosuppression
     Dates: start: 20231102
  15. NOVALGIN (METAMIZOLE SODIUM) [Concomitant]
     Active Substance: METAMIZOLE SODIUM
     Route: 048
     Dates: start: 20231208
  16. METHOTREXATE SODIUM [Concomitant]
     Active Substance: METHOTREXATE SODIUM

REACTIONS (5)
  - Myelosuppression [Unknown]
  - Mucosal inflammation [Recovered/Resolved]
  - Pyrexia [Recovered/Resolved]
  - Off label use [Unknown]
  - Off label use [Unknown]

NARRATIVE: CASE EVENT DATE: 20231116
